FAERS Safety Report 4377020-9 (Version None)
Quarter: 2004Q2

REPORT INFORMATION
  Report Type: 
  Country: None (occurrence: None)
  Receive Date: 20040608
  Receipt Date: 20040526
  Transmission Date: 20050107
  Serious: Yes (Hospitalization)
  Sender: FDA-Public Use
  Company Number: 2004035164

PATIENT

DRUGS (1)
  1. NIFEDIPINE [Suspect]
     Indication: ILL-DEFINED DISORDER
     Dosage: ORAL
     Route: 048

REACTIONS (2)
  - BEZOAR [None]
  - GASTROINTESTINAL HAEMORRHAGE [None]
